FAERS Safety Report 7489396-4 (Version None)
Quarter: 2011Q2

REPORT INFORMATION
  Report Type: 
  Country: None (occurrence: None)
  Receive Date: 20110518
  Receipt Date: 20110516
  Transmission Date: 20111010
  Serious: Yes (Hospitalization)
  Sender: FDA-Public Use
  Company Number: IT-ABBOTT-11P-083-0724522-00

PATIENT
  Age: 24 Year
  Sex: Male

DRUGS (1)
  1. DEPAKENE [Suspect]
     Indication: EPILEPSY
     Route: 048
     Dates: start: 20101001, end: 20110206

REACTIONS (2)
  - HYPERTRANSAMINASAEMIA [None]
  - GRAND MAL CONVULSION [None]
